FAERS Safety Report 11165976 (Version 1)
Quarter: 2015Q2

REPORT INFORMATION
  Report Type: Spontaneous
  Country: IL (occurrence: IL)
  Receive Date: 20150604
  Receipt Date: 20150604
  Transmission Date: 20150821
  Serious: Yes (Congenital Anomaly)
  Sender: FDA-Public Use
  Company Number: IL-009507513-1506ISR001278

PATIENT
  Sex: Male

DRUGS (1)
  1. PROPECIA [Suspect]
     Active Substance: FINASTERIDE
     Dosage: UNK
     Route: 064
     Dates: end: 201505

REACTIONS (3)
  - Anal fistula [Unknown]
  - Exposure via father [Recovered/Resolved]
  - Foetal exposure during pregnancy [Recovered/Resolved]
